FAERS Safety Report 25199489 (Version 4)
Quarter: 2025Q3

REPORT INFORMATION
  Report Type: Report from Study
  Country: US (occurrence: US)
  Receive Date: 20250415
  Receipt Date: 20250918
  Transmission Date: 20251021
  Serious: Yes (Hospitalization)
  Sender: NOVARTIS
  Company Number: US-002147023-NVSC2025US061978

PATIENT
  Age: 5 Year
  Sex: Male
  Weight: 18.14 kg

DRUGS (6)
  1. ILARIS [Suspect]
     Active Substance: CANAKINUMAB
     Indication: Juvenile idiopathic arthritis
     Route: 058
     Dates: start: 20210928
  2. ILARIS [Suspect]
     Active Substance: CANAKINUMAB
     Route: 058
     Dates: start: 20230705
  3. ILARIS [Suspect]
     Active Substance: CANAKINUMAB
     Route: 065
     Dates: start: 20250810
  4. METHOTREXATE [Concomitant]
     Active Substance: METHOTREXATE
     Indication: Product used for unknown indication
     Route: 065
  5. NAPROXEN [Concomitant]
     Active Substance: NAPROXEN
     Indication: Product used for unknown indication
     Route: 065
  6. IRON [Concomitant]
     Active Substance: IRON
     Indication: Product used for unknown indication
     Route: 065

REACTIONS (2)
  - Pyrexia [Recovering/Resolving]
  - Subcutaneous abscess [Unknown]

NARRATIVE: CASE EVENT DATE: 20250411
